FAERS Safety Report 23243638 (Version 1)
Quarter: 2023Q4

REPORT INFORMATION
  Report Type: Report from Study
  Country: US (occurrence: US)
  Receive Date: 20231130
  Receipt Date: 20231130
  Transmission Date: 20240110
  Serious: No
  Sender: FDA-Public Use
  Company Number: US-ALXN-A202308343

PATIENT
  Age: 16 Year
  Sex: Female

DRUGS (1)
  1. STRENSIQ [Suspect]
     Active Substance: ASFOTASE ALFA
     Indication: Hypophosphatasia
     Dosage: 99.2 MG, TIW
     Route: 065

REACTIONS (8)
  - Anger [Recovering/Resolving]
  - Attention deficit hyperactivity disorder [Recovering/Resolving]
  - Disturbance in attention [Recovering/Resolving]
  - Treatment noncompliance [Unknown]
  - Blood calcium decreased [Unknown]
  - Osteoporosis [Unknown]
  - Scoliosis [Unknown]
  - Blood alkaline phosphatase decreased [Unknown]

NARRATIVE: CASE EVENT DATE: 20230101
